FAERS Safety Report 15202499 (Version 1)
Quarter: 2018Q3

REPORT INFORMATION
  Report Type: Spontaneous
  Country: US (occurrence: US)
  Receive Date: 20180627
  Receipt Date: 20180627
  Transmission Date: 20181010
  Serious: Yes (Other)
  Sender: FDA-Public Use
  Company Number: None

PATIENT
  Age: 62 Year
  Sex: Female
  Weight: 83.91 kg

DRUGS (8)
  1. AMLODIPINE [Concomitant]
     Active Substance: AMLODIPINE BESYLATE
  2. NUCYNTA ER [Suspect]
     Active Substance: TAPENTADOL HYDROCHLORIDE
     Indication: NEURALGIA
     Dosage: ?          QUANTITY:2 DF DOSAGE FORM;?
     Route: 048
  3. BACLOFEN. [Concomitant]
     Active Substance: BACLOFEN
  4. NUCYNTA ER [Suspect]
     Active Substance: TAPENTADOL HYDROCHLORIDE
     Indication: SURGERY
     Dosage: ?          QUANTITY:2 DF DOSAGE FORM;?
     Route: 048
  5. VITAMIN D [Concomitant]
     Active Substance: CHOLECALCIFEROL
  6. NUCYNTA ER [Suspect]
     Active Substance: TAPENTADOL HYDROCHLORIDE
     Indication: LIMB INJURY
     Dosage: ?          QUANTITY:2 DF DOSAGE FORM;?
     Route: 048
  7. ZYRTEC [Concomitant]
     Active Substance: CETIRIZINE HYDROCHLORIDE
  8. NUCYNTA ER [Suspect]
     Active Substance: TAPENTADOL HYDROCHLORIDE
     Indication: COMPLEX REGIONAL PAIN SYNDROME
     Dosage: ?          QUANTITY:2 DF DOSAGE FORM;?
     Route: 048

REACTIONS (12)
  - Memory impairment [None]
  - Impaired driving ability [None]
  - Dysarthria [None]
  - Withdrawal syndrome [None]
  - Tremor [None]
  - Vision blurred [None]
  - Thinking abnormal [None]
  - Cognitive disorder [None]
  - Dysgraphia [None]
  - Aphasia [None]
  - Influenza [None]
  - Dyspepsia [None]

NARRATIVE: CASE EVENT DATE: 20170630
